FAERS Safety Report 10178078 (Version 1)
Quarter: 2014Q2

REPORT INFORMATION
  Report Type: Spontaneous
  Country: US (occurrence: US)
  Receive Date: 20140518
  Receipt Date: 20140518
  Transmission Date: 20141212
  Serious: No
  Sender: FDA-Public Use
  Company Number: US-009507513-1405USA007223

PATIENT
  Age: 9 Year
  Sex: Male

DRUGS (1)
  1. SINGULAIR [Suspect]
     Dosage: UNK
     Route: 048
     Dates: start: 2009

REACTIONS (2)
  - Headache [Not Recovered/Not Resolved]
  - Abdominal pain [Not Recovered/Not Resolved]
